FAERS Safety Report 13692470 (Version 1)
Quarter: 2017Q2

REPORT INFORMATION
  Report Type: Spontaneous
  Country: FR (occurrence: FR)
  Receive Date: 20170627
  Receipt Date: 20170627
  Transmission Date: 20170830
  Serious: Yes (Other)
  Sender: FDA-Public Use
  Company Number: FR-009507513-1706FRA008304

PATIENT
  Age: 70 Year
  Sex: Female

DRUGS (10)
  1. CANDESARTAN CILEXETIL. [Concomitant]
     Active Substance: CANDESARTAN CILEXETIL
  2. METHOTREXATE. [Suspect]
     Active Substance: METHOTREXATE
     Indication: DERMATITIS ATOPIC
     Dosage: 10 MG, QW
     Dates: start: 201512
  3. CALCIPRAT D3 [Concomitant]
  4. FENOFIBRATE. [Concomitant]
     Active Substance: FENOFIBRATE
  5. AERIUS [Concomitant]
     Active Substance: DESLORATADINE
  6. ATACAND [Concomitant]
     Active Substance: CANDESARTAN CILEXETIL
  7. DIPROSONE [Suspect]
     Active Substance: BETAMETHASONE DIPROPIONATE
     Indication: DERMATITIS ATOPIC
     Route: 061
  8. ALPRESS LP [Concomitant]
     Active Substance: PRAZOSIN HYDROCHLORIDE
  9. METHOTREXATE. [Suspect]
     Active Substance: METHOTREXATE
     Dosage: 7.5 MG, QW
     Dates: start: 2007, end: 2009
  10. LIPANTHYL [Concomitant]
     Active Substance: FENOFIBRATE

REACTIONS (1)
  - Osteoporosis [Not Recovered/Not Resolved]

NARRATIVE: CASE EVENT DATE: 2017
